FAERS Safety Report 19673876 (Version 1)
Quarter: 2021Q3

REPORT INFORMATION
  Report Type: Spontaneous
  Country: US (occurrence: US)
  Receive Date: 20210809
  Receipt Date: 20210809
  Transmission Date: 20211014
  Serious: Yes (Other)
  Sender: FDA-Public Use
  Company Number: US-ACCORD-179969

PATIENT
  Age: 56 Year
  Sex: Female
  Weight: 88 kg

DRUGS (8)
  1. HYDRALAZINE [Concomitant]
     Active Substance: HYDRALAZINE HYDROCHLORIDE
     Dates: start: 200910
  2. LOSARTON [Concomitant]
     Dates: start: 2012
  3. CARVEDILOL/CARVEDILOL HYDROCHLODRIDE [Concomitant]
     Active Substance: CARVEDILOL HYDROCHLORIDE
     Dates: start: 2014
  4. RENVELA [Concomitant]
     Active Substance: SEVELAMER CARBONATE
     Dates: start: 200901
  5. SENSIPAR [Concomitant]
     Active Substance: CINACALCET HYDROCHLORIDE
     Dates: start: 2017
  6. CALCITRIOL. [Concomitant]
     Active Substance: CALCITRIOL
     Dates: start: 2012
  7. DOCETAXEL ACCORD [Suspect]
     Active Substance: DOCETAXEL
     Indication: BREAST CANCER
     Dates: start: 20140414, end: 20140616
  8. NORVAC [Concomitant]
     Active Substance: AMLODIPINE BESYLATE
     Dates: start: 200910

REACTIONS (1)
  - Alopecia [Unknown]

NARRATIVE: CASE EVENT DATE: 2014
